FAERS Safety Report 9896437 (Version 1)
Quarter: 2014Q1

REPORT INFORMATION
  Report Type: Spontaneous
  Country: US (occurrence: US)
  Receive Date: 20140213
  Receipt Date: 20140213
  Transmission Date: 20141002
  Serious: No
  Sender: FDA-Public Use
  Company Number: US-BRISTOL-MYERS SQUIBB COMPANY-17440199

PATIENT
  Age: 53 Year
  Sex: Female
  Weight: 58.96 kg

DRUGS (2)
  1. ORENCIA [Suspect]
     Indication: RHEUMATOID ARTHRITIS
     Dosage: HER LAST INFUSION WAS ON 15FEB2013
     Route: 042
  2. SOLU-MEDROL [Concomitant]

REACTIONS (4)
  - Malaise [Recovering/Resolving]
  - Weight increased [Unknown]
  - Fluid retention [Unknown]
  - Influenza [Unknown]
